FAERS Safety Report 24662309 (Version 3)
Quarter: 2025Q4

REPORT INFORMATION
  Report Type: Spontaneous
  Country: US (occurrence: US)
  Receive Date: 20241125
  Receipt Date: 20251028
  Transmission Date: 20260118
  Serious: No
  Sender: SUNOVION
  Company Number: US-SMPA-2024SPA005305AA

PATIENT
  Age: 60 Year
  Sex: Male

DRUGS (3)
  1. ORGOVYX [Suspect]
     Active Substance: RELUGOLIX
     Indication: Prostate cancer
     Dosage: 360 MG, SINGLE
     Route: 048
  2. ORGOVYX [Suspect]
     Active Substance: RELUGOLIX
     Dosage: 120 MG, QD
     Route: 048
     Dates: start: 20240925
  3. NUBEQA [Concomitant]
     Active Substance: DAROLUTAMIDE
     Dosage: UNK

REACTIONS (3)
  - Myopia [Unknown]
  - Illness [Unknown]
  - Product dose omission issue [Recovered/Resolved]
